FAERS Safety Report 4314554-7 (Version None)
Quarter: 2004Q1

REPORT INFORMATION
  Report Type: 
  Country: None (occurrence: None)
  Receive Date: 20040309
  Receipt Date: 20040227
  Transmission Date: 20041129
  Serious: Yes (Death)
  Sender: FDA-Public Use
  Company Number: WAES 0403COL00001

PATIENT
  Age: 76 Year
  Sex: Female
  Weight: 60 kg

DRUGS (4)
  1. AZTREONAM [Concomitant]
  2. CANCIDAS [Suspect]
     Indication: ABDOMINAL SEPSIS
     Route: 041
     Dates: start: 20040226, end: 20040228
  3. CILASTATIN SODIUM AND IMIPENEM [Concomitant]
  4. VANCOMYCIN [Concomitant]

REACTIONS (1)
  - PULMONARY EMBOLISM [None]
